FAERS Safety Report 10075664 (Version 6)
Quarter: 2016Q2

REPORT INFORMATION
  Report Type: Spontaneous
  Country: US (occurrence: US)
  Receive Date: 20140414
  Receipt Date: 20160608
  Transmission Date: 20160815
  Serious: Yes (Hospitalization, Congenital Anomaly, Other)
  Sender: FDA-Public Use
  Company Number: US-ELI_LILLY_AND_COMPANY-US201404001908

PATIENT
  Weight: 3.79 kg

DRUGS (1)
  1. PROZAC [Suspect]
     Active Substance: FLUOXETINE HYDROCHLORIDE
     Indication: PRODUCT USED FOR UNKNOWN INDICATION
     Dosage: UNK, UNKNOWN
     Route: 064

REACTIONS (12)
  - Appendicitis [Unknown]
  - Tracheomalacia [Recovered/Resolved]
  - Dysphagia [Recovered/Resolved]
  - Cough [Unknown]
  - Junctional ectopic tachycardia [Recovered/Resolved]
  - Congenital aortic anomaly [Recovering/Resolving]
  - Aortic dilatation [Recovering/Resolving]
  - Foetal exposure during pregnancy [Recovered/Resolved]
  - Truncus arteriosus persistent [Recovering/Resolving]
  - Bronchomalacia [Recovered/Resolved]
  - Upper respiratory tract infection [Unknown]
  - Feeding disorder [Unknown]
